FAERS Safety Report 6355998-1 (Version None)
Quarter: 2009Q3

REPORT INFORMATION
  Report Type: 
  Country: None (occurrence: None)
  Receive Date: 20090911
  Receipt Date: 20090911
  Transmission Date: 20100115
  Serious: Yes (Life-Threatening, Hospitalization)
  Sender: FDA-Public Use
  Company Number: None

PATIENT
  Sex: Female
  Weight: 58.6 kg

DRUGS (1)
  1. PROMETRIUM [Suspect]
     Indication: MENSTRUAL DISORDER
     Dosage: 200MG 1X DAY MOUTH
     Route: 048
     Dates: start: 20090831

REACTIONS (7)
  - BALANCE DISORDER [None]
  - CONFUSIONAL STATE [None]
  - DIZZINESS [None]
  - DYSARTHRIA [None]
  - PRESYNCOPE [None]
  - THINKING ABNORMAL [None]
  - VISUAL IMPAIRMENT [None]
